FAERS Safety Report 10871964 (Version 1)
Quarter: 2015Q1

REPORT INFORMATION
  Report Type: Spontaneous
  Country: US (occurrence: None)
  Receive Date: 20150223
  Receipt Date: 20150223
  Transmission Date: 20150721
  Serious: Yes (Other)
  Sender: FDA-Public Use
  Company Number: None

PATIENT
  Age: 20 Year
  Sex: Female
  Weight: 37.88 kg

DRUGS (8)
  1. QUETIAPINE FUMARATE. [Concomitant]
     Active Substance: QUETIAPINE FUMARATE
  2. DIPHENHYDRAMINE HCL [Suspect]
     Active Substance: DIPHENHYDRAMINE HYDROCHLORIDE
     Indication: FOOD ALLERGY
     Dosage: 2 PILL   AS NEEDED TAKEN BY MOUTH
     Route: 048
  3. EXCEDRIN (ACETEMINOPHEN/ASPIRIN/CAFFEINE) [Concomitant]
  4. AMPHETAMIE SALTS [Concomitant]
  5. LAMOTRIGINE. [Concomitant]
     Active Substance: LAMOTRIGINE
  6. ALPRAZOLAM. [Concomitant]
     Active Substance: ALPRAZOLAM
  7. HYOSCYAMINE [Concomitant]
     Active Substance: HYOSCYAMINE
  8. FLUOXETINE [Concomitant]
     Active Substance: FLUOXETINE\FLUOXETINE HYDROCHLORIDE

REACTIONS (6)
  - Depressed level of consciousness [None]
  - Derealisation [None]
  - Incoherent [None]
  - Delirium [None]
  - Hallucination, auditory [None]
  - Depersonalisation [None]

NARRATIVE: CASE EVENT DATE: 20140829
